FAERS Safety Report 20897907 (Version 1)
Quarter: 2022Q2

REPORT INFORMATION
  Report Type: Spontaneous
  Country: US (occurrence: US)
  Receive Date: 20220531
  Receipt Date: 20220531
  Transmission Date: 20220721
  Serious: No
  Sender: FDA-Public Use
  Company Number: US-PFIZER INC-202200771228

PATIENT
  Age: 71 Year
  Sex: Female
  Weight: 53.07 kg

DRUGS (4)
  1. PAXLOVID [Suspect]
     Active Substance: NIRMATRELVIR\RITONAVIR
     Indication: COVID-19
     Dosage: 100 MG, PAXLOVID 20X 150 MG AND 10X 100 MG TAB (ONE TIME A DAY, MORNING AND EVENING)
  2. BUPROPION [Suspect]
     Active Substance: BUPROPION
     Dosage: UNK
  3. BUSPIRONE [Suspect]
     Active Substance: BUSPIRONE HYDROCHLORIDE
     Dosage: UNK
  4. LEXAPRO [Suspect]
     Active Substance: ESCITALOPRAM OXALATE
     Dosage: UNK

REACTIONS (5)
  - Thinking abnormal [Unknown]
  - Dizziness [Unknown]
  - Feeling abnormal [Unknown]
  - Memory impairment [Unknown]
  - Condition aggravated [Unknown]
